FAERS Safety Report 17895468 (Version 7)
Quarter: 2023Q2

REPORT INFORMATION
  Report Type: Spontaneous
  Country: US (occurrence: US)
  Receive Date: 20200615
  Receipt Date: 20230526
  Transmission Date: 20230722
  Serious: Yes (Other)
  Sender: FDA-Public Use
  Company Number: US-PFIZER INC-2020231260

PATIENT
  Age: 64 Year
  Sex: Female

DRUGS (2)
  1. XELJANZ XR [Suspect]
     Active Substance: TOFACITINIB CITRATE
     Dosage: 11 MG
  2. XELJANZ XR [Suspect]
     Active Substance: TOFACITINIB CITRATE
     Dosage: 11 MG, 1X/DAY
     Route: 048

REACTIONS (13)
  - Mental impairment [Unknown]
  - Cardiac failure congestive [Unknown]
  - Knee arthroplasty [Unknown]
  - Somnolence [Unknown]
  - Hypertension [Unknown]
  - Pain [Unknown]
  - Swelling [Unknown]
  - Peripheral swelling [Unknown]
  - Cardiac disorder [Unknown]
  - Malaise [Unknown]
  - Speech disorder [Unknown]
  - Memory impairment [Unknown]
  - Product prescribing error [Unknown]
